FAERS Safety Report 6218187-7 (Version None)
Quarter: 2009Q2

REPORT INFORMATION
  Report Type: 
  Country: None (occurrence: None)
  Receive Date: 20090608
  Receipt Date: 20090527
  Transmission Date: 20091009
  Serious: Yes (Hospitalization)
  Sender: FDA-Public Use
  Company Number: AR-NOVOPROD-287191

PATIENT
  Sex: Male
  Weight: 1.9 kg

DRUGS (3)
  1. LEVEMIR [Suspect]
     Indication: DIABETES MELLITUS
     Dosage: 38 IU, UNK
     Route: 064
     Dates: start: 20071101
  2. LEVEMIR [Suspect]
     Dosage: 46 IU, QD
     Route: 064
  3. NOVOLOG [Suspect]
     Indication: DIABETES MELLITUS
     Dosage: FROM 12-16 IU DAILY, ACCORDING NEEDS
     Route: 064

REACTIONS (1)
  - PREMATURE BABY [None]
